FAERS Safety Report 8925467 (Version 1)
Quarter: 2012Q4

REPORT INFORMATION
  Report Type: 
  Country: US (occurrence: US)
  Receive Date: 20121126
  Receipt Date: 20121126
  Transmission Date: 20130627
  Serious: Yes (Hospitalization)
  Sender: FDA-Public Use
  Company Number: US-BAYER-2012-120073

PATIENT
  Age: 27 Year
  Sex: Female

DRUGS (9)
  1. YASMIN [Suspect]
     Indication: BIRTH CONTROL
  2. YASMIN [Suspect]
     Indication: MENSTRUAL CYCLE MANAGEMENT
  3. OCELLA [Suspect]
  4. ABILIFY [Concomitant]
  5. ACIPHEX [Concomitant]
  6. EFFEXOR [Concomitant]
  7. IMODIUM [Concomitant]
  8. LAMICTAL [Concomitant]
  9. LUVOX [Concomitant]

REACTIONS (1)
  - Ischaemic stroke [None]
